FAERS Safety Report 18021800 (Version 3)
Quarter: 2025Q1

REPORT INFORMATION
  Report Type: Spontaneous
  Country: DE (occurrence: DE)
  Receive Date: 20200715
  Receipt Date: 20250315
  Transmission Date: 20250408
  Serious: Yes (Life-Threatening, Hospitalization, Other)
  Sender: AUROBINDO
  Company Number: DE-MACLEODS PHARMA UK LTD-MAC2020026951

PATIENT
  Age: 27 Year
  Sex: Female
  Weight: 78 kg

DRUGS (9)
  1. GABAPENTIN [Suspect]
     Active Substance: GABAPENTIN
     Indication: Product used for unknown indication
     Route: 048
     Dates: start: 200604
  2. LACOSAMIDE [Suspect]
     Active Substance: LACOSAMIDE
     Indication: Autonomic seizure
     Dosage: 200 GRAM, ONCE A DAY (QD IN REGULATORY TRIAL (SP755)
     Route: 065
     Dates: start: 2005
  3. LACOSAMIDE [Suspect]
     Active Substance: LACOSAMIDE
     Indication: Product used for unknown indication
     Route: 042
  4. LACOSAMIDE [Suspect]
     Active Substance: LACOSAMIDE
     Dosage: 300 MILLIGRAM, TWO TIMES A DAY (IN BOTH THE EXTENSION STUDY AND THE INTRAVENOUS STUDY )
     Route: 042
  5. LACOSAMIDE [Suspect]
     Active Substance: LACOSAMIDE
     Route: 065
  6. LACOSAMIDE [Suspect]
     Active Substance: LACOSAMIDE
     Route: 048
     Dates: start: 200604, end: 200604
  7. LACOSAMIDE [Suspect]
     Active Substance: LACOSAMIDE
     Dosage: 600 MILLIGRAM, TWO TIMES A DAY
     Route: 065
  8. TOPIRAMATE [Suspect]
     Active Substance: TOPIRAMATE
     Indication: Product used for unknown indication
     Route: 048
     Dates: start: 200604, end: 200604
  9. ZONISAMIDE [Suspect]
     Active Substance: ZONISAMIDE
     Indication: Product used for unknown indication
     Route: 048
     Dates: start: 200604

REACTIONS (16)
  - Coma [Recovered/Resolved]
  - Encephalopathy [Unknown]
  - Pneumonia aspiration [Recovered/Resolved]
  - Electrocardiogram PR prolongation [Recovered/Resolved]
  - Acidosis [Unknown]
  - Hypotension [Recovered/Resolved]
  - Generalised tonic-clonic seizure [Recovered/Resolved]
  - Vomiting [Unknown]
  - Toxicity to various agents [Recovered/Resolved]
  - Intentional overdose [Recovered/Resolved]
  - Blood pressure decreased [Unknown]
  - Pyrexia [Unknown]
  - Poisoning [Unknown]
  - Pneumonia [Unknown]
  - Blood potassium decreased [Unknown]
  - White blood cell count increased [Unknown]

NARRATIVE: CASE EVENT DATE: 20060401
